FAERS Safety Report 6575995-0 (Version None)
Quarter: 2010Q1

REPORT INFORMATION
  Report Type: 
  Country: None (occurrence: None)
  Receive Date: 20100209
  Receipt Date: 20100127
  Transmission Date: 20100710
  Serious: Yes (Death)
  Sender: FDA-Public Use
  Company Number: JP-GENENTECH-293437

PATIENT
  Sex: Male

DRUGS (5)
  1. LUCENTIS [Suspect]
     Indication: MACULAR DEGENERATION
     Dosage: 0.05 ML, UNK
     Route: 031
     Dates: start: 20090417
  2. ADALAT [Concomitant]
     Indication: DRUG USE FOR UNKNOWN INDICATION
  3. RENIVACE [Concomitant]
     Indication: DRUG USE FOR UNKNOWN INDICATION
  4. ACETYLSALICYLIC ACID [Concomitant]
     Indication: DRUG USE FOR UNKNOWN INDICATION
  5. PANALDINE [Concomitant]
     Indication: DRUG USE FOR UNKNOWN INDICATION

REACTIONS (1)
  - DEATH [None]
